FAERS Safety Report 14379472 (Version 2)
Quarter: 2018Q1

REPORT INFORMATION
  Report Type: Spontaneous
  Country: US (occurrence: US)
  Receive Date: 20180112
  Receipt Date: 20180223
  Transmission Date: 20180509
  Serious: No
  Sender: FDA-Public Use
  Company Number: US-BRISTOL-MYERS SQUIBB COMPANY-BMS-2018-002553

PATIENT
  Sex: Male
  Weight: 128.35 kg

DRUGS (1)
  1. ORENCIA [Suspect]
     Active Substance: ABATACEPT
     Indication: JUVENILE PSORIATIC ARTHRITIS
     Dosage: 125 MG, QWK
     Route: 058
     Dates: start: 201710

REACTIONS (3)
  - Localised infection [Unknown]
  - Drug ineffective [Unknown]
  - Product use in unapproved indication [Unknown]
